FAERS Safety Report 8378760-7 (Version None)
Quarter: 2012Q2

REPORT INFORMATION
  Report Type: 
  Country: None (occurrence: None)
  Receive Date: 20120522
  Receipt Date: 20120515
  Transmission Date: 20120825
  Serious: Yes (Life-Threatening)
  Sender: FDA-Public Use
  Company Number: GB-TEVA-338177ISR

PATIENT
  Age: 39 Year
  Sex: Female
  Weight: 52.7 kg

DRUGS (11)
  1. ERYTHROMYCIN [Suspect]
     Dates: start: 20110214, end: 20110221
  2. METOCLOPRAMIDE [Concomitant]
     Dates: start: 20120316, end: 20120326
  3. ASPIRIN [Concomitant]
     Dates: start: 20120501
  4. QVAR 40 [Concomitant]
     Dates: start: 20120308
  5. PREDNISOLONE [Concomitant]
     Dates: start: 20120501
  6. OMEPRAZOLE [Concomitant]
     Dates: start: 20120308, end: 20120405
  7. ERYTHROMYCIN [Suspect]
     Dates: start: 20120501
  8. VENTOLIN [Concomitant]
     Dates: start: 20120207, end: 20120306
  9. CODEINE PHOSPHATE [Concomitant]
     Dates: start: 20120214, end: 20120224
  10. AZATHIOPRINE [Concomitant]
     Dates: start: 20120501
  11. COTRIM [Concomitant]
     Dates: start: 20120501

REACTIONS (2)
  - HEPATIC FAILURE [None]
  - HEPATITIS [None]
